FAERS Safety Report 23110635 (Version 1)
Quarter: 2023Q4

REPORT INFORMATION
  Report Type: Spontaneous
  Country: US (occurrence: None)
  Receive Date: 20231024
  Receipt Date: 20231024
  Transmission Date: 20240110
  Serious: Yes (Hospitalization)
  Sender: FDA-Public Use
  Company Number: None

PATIENT
  Sex: Male

DRUGS (10)
  1. TESTOPEL [Suspect]
     Active Substance: TESTOSTERONE
     Indication: Testicular failure
     Dates: start: 20200910
  2. AMLODIPINE [Concomitant]
     Active Substance: AMLODIPINE BESYLATE
  3. CALCIUM [Concomitant]
  4. FISH OIL [Concomitant]
     Active Substance: FISH OIL
  5. LISINOPRIL [Concomitant]
     Active Substance: LISINOPRIL
  6. METHADONE [Concomitant]
     Active Substance: METHADONE HYDROCHLORIDE
  7. PERICLEAN LIQ [Concomitant]
  8. TRELEGY AER [Concomitant]
  9. VENTOLIN HFA [Concomitant]
  10. VITAMIN D CAP [Concomitant]

REACTIONS (1)
  - Gastrointestinal haemorrhage [None]
